FAERS Safety Report 19514161 (Version 2)
Quarter: 2021Q3

REPORT INFORMATION
  Report Type: Spontaneous
  Country: FR (occurrence: FR)
  Receive Date: 20210709
  Receipt Date: 20210716
  Transmission Date: 20211014
  Serious: Yes (Hospitalization)
  Sender: FDA-Public Use
  Company Number: FR-PURDUE-USA-2021-0274141

PATIENT
  Age: 28 Year
  Sex: Female
  Weight: 115 kg

DRUGS (5)
  1. ACUPAN [Suspect]
     Active Substance: NEFOPAM HYDROCHLORIDE
     Indication: PRODUCT USED FOR UNKNOWN INDICATION
     Dosage: 20 MG, UNK
     Route: 048
     Dates: start: 20210429
  2. ZOPICLONE [Interacting]
     Active Substance: ZOPICLONE
     Indication: PRODUCT USED FOR UNKNOWN INDICATION
     Dosage: 105 MG, UNK
     Route: 048
     Dates: start: 20210429
  3. OXYCODONE HYDROCHLORIDE. [Suspect]
     Active Substance: OXYCODONE HYDROCHLORIDE
     Indication: PRODUCT USED FOR UNKNOWN INDICATION
     Dosage: 70 MG, UNK
     Route: 048
     Dates: start: 20210429
  4. BRINTELLIX [Interacting]
     Active Substance: VORTIOXETINE HYDROBROMIDE
     Indication: PRODUCT USED FOR UNKNOWN INDICATION
     Dosage: 280 MG, UNK
     Route: 048
     Dates: start: 20210429
  5. TRAMADOL CLORHIDRATO [Interacting]
     Active Substance: TRAMADOL HYDROCHLORIDE
     Indication: PRODUCT USED FOR UNKNOWN INDICATION
     Dosage: 3250 MG, UNK
     Route: 048
     Dates: start: 20210429

REACTIONS (3)
  - Drug interaction [Unknown]
  - Coma [Recovered/Resolved]
  - Overdose [Unknown]

NARRATIVE: CASE EVENT DATE: 20210429
